FAERS Safety Report 9948351 (Version 1)
Quarter: 2014Q1

REPORT INFORMATION
  Report Type: Spontaneous
  Country: US (occurrence: None)
  Receive Date: 20140122
  Receipt Date: 20140122
  Transmission Date: 20141002
  Serious: No
  Sender: FDA-Public Use
  Company Number: AP356-00176-SPO-US

PATIENT
  Age: 67 Year
  Sex: Female
  Weight: 86.1 kg

DRUGS (1)
  1. BELVIQ [Suspect]
     Indication: OBESITY
     Route: 048
     Dates: start: 20130725, end: 20130728

REACTIONS (4)
  - Arthralgia [None]
  - Headache [None]
  - Dizziness [None]
  - Fatigue [None]
